FAERS Safety Report 9392879 (Version 2)
Quarter: 2013Q3

REPORT INFORMATION
  Report Type: Spontaneous
  Country: US (occurrence: US)
  Receive Date: 20130710
  Receipt Date: 20130711
  Transmission Date: 20140515
  Serious: No
  Sender: FDA-Public Use
  Company Number: US-PFIZER INC-2013200740

PATIENT
  Age: 49 Year
  Sex: Female
  Weight: 65.76 kg

DRUGS (2)
  1. XANAX [Suspect]
     Indication: PANIC ATTACK
     Dosage: 0.25 MG, AS NEEDED
  2. ZOLOFT [Concomitant]
     Dosage: UNK

REACTIONS (4)
  - Product quality issue [Unknown]
  - Hypersensitivity [Unknown]
  - Pain [Unknown]
  - Abdominal pain upper [Unknown]
